FAERS Safety Report 8049973-9 (Version None)
Quarter: 2012Q1

REPORT INFORMATION
  Report Type: 
  Country: None (occurrence: None)
  Receive Date: 20120117
  Receipt Date: 20120110
  Transmission Date: 20120608
  Serious: Yes (Other)
  Sender: FDA-Public Use
  Company Number: GB-PFIZER INC-2011280617

PATIENT
  Age: 61 Year
  Sex: Male
  Weight: 108 kg

DRUGS (5)
  1. FLUOXETINE [Concomitant]
     Indication: DEPRESSION
     Dosage: 20 MG, 1X/DAY
     Route: 048
     Dates: start: 20100204
  2. VIAGRA [Suspect]
     Indication: ERECTILE DYSFUNCTION
     Dosage: 100 MG, SINGLE
     Route: 048
     Dates: start: 20111115
  3. AMITRIPTYLINE [Concomitant]
     Indication: PAIN
     Dosage: 20 MG, AT NIGHTS
     Route: 048
     Dates: start: 20090514
  4. TRIMETHOPRIM [Concomitant]
     Indication: PROPHYLAXIS URINARY TRACT INFECTION
     Dosage: 100 MG, AT NIGHTS
     Route: 048
     Dates: start: 20081013
  5. AMITRIPTYLINE [Concomitant]
     Indication: INSOMNIA

REACTIONS (3)
  - DRUG INEFFECTIVE [None]
  - GASTROINTESTINAL MOTILITY DISORDER [None]
  - ANORECTAL DISCOMFORT [None]
